FAERS Safety Report 8764960 (Version 4)
Quarter: 2012Q4

REPORT INFORMATION
  Report Type: 
  Country: US (occurrence: US)
  Receive Date: 20120903
  Receipt Date: 20121105
  Transmission Date: 20130627
  Serious: Yes (Hospitalization, Other)
  Sender: FDA-Public Use
  Company Number: US-BRISTOL-MYERS SQUIBB COMPANY-16889024

PATIENT
  Age: 54 Year
  Sex: Female
  Weight: 74 kg

DRUGS (2)
  1. ORENCIA [Suspect]
     Indication: RHEUMATOID ARTHRITIS
     Dosage: Last inf: 18Oct12
     Route: 042
  2. PREDNISONE [Concomitant]
     Dosage: Dose increased from 10mg

REACTIONS (4)
  - White blood cell count decreased [Unknown]
  - Ligament rupture [Unknown]
  - Rheumatoid arthritis [Unknown]
  - Drug ineffective [Unknown]
